FAERS Safety Report 17439408 (Version 1)
Quarter: 2020Q1

REPORT INFORMATION
  Report Type: Report from Study
  Country: US (occurrence: US)
  Receive Date: 20200220
  Receipt Date: 20200220
  Transmission Date: 20200409
  Serious: Yes (Death)
  Sender: FDA-Public Use
  Company Number: US-BAUSCH-BL-2020-004842

PATIENT
  Age: 75 Year
  Sex: Female

DRUGS (1)
  1. XENAZINE [Suspect]
     Active Substance: TETRABENAZINE
     Indication: HUNTINGTON^S DISEASE
     Route: 048
     Dates: end: 20200119

REACTIONS (2)
  - Cardiac arrest [Fatal]
  - Therapy cessation [Unknown]

NARRATIVE: CASE EVENT DATE: 20200119
